FAERS Safety Report 17994345 (Version 2)
Quarter: 2020Q4

REPORT INFORMATION
  Report Type: Spontaneous
  Country: US (occurrence: US)
  Receive Date: 20200708
  Receipt Date: 20201222
  Transmission Date: 20210113
  Serious: No
  Sender: FDA-Public Use
  Company Number: US-PFIZER INC-2020261069

PATIENT
  Age: 65 Year
  Sex: Male

DRUGS (1)
  1. XELJANZ XR [Suspect]
     Active Substance: TOFACITINIB CITRATE
     Dosage: UNK

REACTIONS (7)
  - Myalgia [Unknown]
  - Eye irritation [Unknown]
  - Arthralgia [Unknown]
  - Joint swelling [Unknown]
  - Illness [Unknown]
  - Peripheral swelling [Unknown]
  - Abdominal pain upper [Unknown]
